FAERS Safety Report 4403901-3 (Version None)
Quarter: 2004Q3

REPORT INFORMATION
  Report Type: 
  Country: None (occurrence: None)
  Receive Date: 20040719
  Receipt Date: 20040706
  Transmission Date: 20050211
  Serious: Yes (Hospitalization, Other)
  Sender: FDA-Public Use
  Company Number: HQWYE656624JUN04

PATIENT
  Age: 83 Year
  Sex: Female

DRUGS (12)
  1. CORDARONE [Suspect]
     Indication: ATRIAL FIBRILLATION
     Dosage: 800 MG 1X PER 1 DAY
     Route: 048
     Dates: start: 20040510, end: 20040518
  2. CORDARONE [Suspect]
     Indication: ATRIAL FLUTTER
     Dosage: 800 MG 1X PER 1 DAY
     Route: 048
     Dates: start: 20040510, end: 20040518
  3. AMLODIPINE BESYLATE [Suspect]
     Route: 048
     Dates: start: 20040519, end: 20040520
  4. INDAPAMIDE [Suspect]
     Route: 048
     Dates: start: 20040510, end: 20040525
  5. IMOVANE (ZOPICLONE ) [Suspect]
     Route: 048
     Dates: start: 20040507, end: 20040525
  6. LOVENOX [Suspect]
     Dosage: 60 MG 1X PER 1 DAY
     Route: 048
     Dates: start: 20040510, end: 20040516
  7. METOPROLOL TARTRATE [Suspect]
     Dosage: 25 MG 2X PER 1 DAY
     Route: 048
     Dates: start: 20040507, end: 20040518
  8. DIAMICRON (GLICLAZIDE) [Concomitant]
  9. GLUCOPHAGE [Concomitant]
  10. SMECTA (ALUMINIUM HYDROZIDE-MAGNESIUM CARBONATE GEL/ALUMINIUM MAGNESIU [Concomitant]
  11. PREVISCAN (FLUINDIONE) [Concomitant]
  12. LASIX [Concomitant]

REACTIONS (7)
  - CYTOMEGALOVIRUS ANTIBODY POSITIVE [None]
  - EPSTEIN-BARR VIRUS ANTIBODY POSITIVE [None]
  - PYREXIA [None]
  - RASH ERYTHEMATOUS [None]
  - RASH GENERALISED [None]
  - RASH MACULO-PAPULAR [None]
  - RASH PRURITIC [None]
